FAERS Safety Report 15338942 (Version 1)
Quarter: 2018Q3

REPORT INFORMATION
  Report Type: Report from Study
  Country: CA (occurrence: CA)
  Receive Date: 20180831
  Receipt Date: 20180831
  Transmission Date: 20181010
  Serious: Yes (Hospitalization)
  Sender: FDA-Public Use
  Company Number: CA-JNJFOC-20180838992

PATIENT
  Sex: Male
  Weight: 52.5 kg

DRUGS (1)
  1. REMICADE [Suspect]
     Active Substance: INFLIXIMAB
     Indication: CROHN^S DISEASE
     Dosage: STRENGTH = 100 MG
     Route: 042

REACTIONS (5)
  - Skin abrasion [Recovering/Resolving]
  - Product use issue [Unknown]
  - Cellulitis [Recovering/Resolving]
  - Off label use [Unknown]
  - Delirium [Unknown]

NARRATIVE: CASE EVENT DATE: 2018
